FAERS Safety Report 15675640 (Version 1)
Quarter: 2018Q4

REPORT INFORMATION
  Report Type: Spontaneous
  Country: US (occurrence: US)
  Receive Date: 20181119
  Receipt Date: 20181119
  Transmission Date: 20190205
  Serious: Yes (Hospitalization)
  Sender: FDA-Public Use
  Company Number: None

PATIENT
  Sex: Female

DRUGS (11)
  1. ALPRAZOLAM. [Concomitant]
     Active Substance: ALPRAZOLAM
  2. DILTIAZEM. [Concomitant]
     Active Substance: DILTIAZEM
  3. XOLAIR [Suspect]
     Active Substance: OMALIZUMAB
     Indication: ASTHMA
     Route: 058
     Dates: start: 20180816
  4. ELIQUIS [Concomitant]
     Active Substance: APIXABAN
  5. IPRATROPIUM/SOL [Concomitant]
  6. BREO ELLIPTA [Concomitant]
     Active Substance: FLUTICASONE FUROATE\VILANTEROL TRIFENATATE
  7. HYDROCHLOROT [Concomitant]
     Active Substance: HYDROCHLOROTHIAZIDE
  8. MUCINEX [Concomitant]
     Active Substance: GUAIFENESIN
  9. PREDNSONE [Concomitant]
  10. LEVAQUIN [Concomitant]
     Active Substance: LEVOFLOXACIN
  11. TRICOR [Concomitant]
     Active Substance: FENOFIBRATE

REACTIONS (1)
  - Pneumonia [None]
